FAERS Safety Report 4599761-0 (Version None)
Quarter: 2005Q1

REPORT INFORMATION
  Report Type: 
  Country: None (occurrence: None)
  Receive Date: 20050303
  Receipt Date: 20040824
  Transmission Date: 20050727
  Serious: Yes (Hospitalization)
  Sender: FDA-Public Use
  Company Number: F01200402599

PATIENT
  Age: 67 Year
  Sex: Male
  Weight: 94 kg

DRUGS (18)
  1. OXALIPLATIN- SOLUTION - 85 MG/M2 [Suspect]
     Indication: COLORECTAL CANCER
     Dosage: 85 MG/M2 Q2W - INTRAVENOUS NOS
     Route: 042
     Dates: start: 20040527, end: 20040527
  2. FLUOROURACIL [Suspect]
     Indication: COLORECTAL CANCER
     Dosage: 500 MG/M2 BOLUS ON D1, D8 AND D15, Q4W - INTRAVENOUS NOS
     Route: 042
     Dates: start: 20040610, end: 20040610
  3. LEUCOVORIN CALCIUM [Suspect]
     Dosage: 20 MG/M2 ON D1, D8 AND D15, Q4W - INTRAVENOUS NOS
     Route: 042
     Dates: start: 20040610, end: 20040610
  4. AVASTIN [Suspect]
     Dosage: 5 MG/KG OVER 30-90 MINUTES IV INFUSION ON D1, D15, Q4W - INTRAVENOUS NOS
     Route: 042
     Dates: start: 20040527, end: 20040527
  5. DILTIAZEM HCL [Concomitant]
  6. GLIMEPIRIDE [Concomitant]
  7. INSULIN GLARGINE [Concomitant]
  8. WARFARIN SODIUM [Concomitant]
  9. MEGESTROL ACETATE [Concomitant]
  10. DRONABINOL [Concomitant]
  11. DIPHENOXYLATE HCL + ATROPINE SULFATE [Concomitant]
  12. GRANISETRON [Concomitant]
  13. OMEPRAZOLE [Concomitant]
  14. PROCHLORPERAZINE EDISYLATE [Concomitant]
  15. LOPERAMIDE HYDROCHLORIDE [Concomitant]
  16. FENOFIBRATE [Concomitant]
  17. SCOPOLAMINE [Concomitant]
  18. ENALAPRIL MALEATE [Concomitant]

REACTIONS (14)
  - ASTHENIA [None]
  - COMPUTERISED TOMOGRAM ABNORMAL [None]
  - CYST [None]
  - DEHYDRATION [None]
  - DIARRHOEA [None]
  - DISORIENTATION [None]
  - FATIGUE [None]
  - FLATULENCE [None]
  - HERNIA [None]
  - INTESTINAL PERFORATION [None]
  - METASTASES TO SPLEEN [None]
  - PROCEDURAL COMPLICATION [None]
  - RENAL FAILURE ACUTE [None]
  - SPLENIC LESION [None]
